FAERS Safety Report 25222071 (Version 1)
Quarter: 2025Q2

REPORT INFORMATION
  Report Type: Spontaneous
  Country: KR (occurrence: KR)
  Receive Date: 20250421
  Receipt Date: 20250421
  Transmission Date: 20250716
  Serious: Yes (Other)
  Sender: PFIZER
  Company Number: KR-PFIZER INC-202500080650

PATIENT
  Age: 76 Year
  Sex: Female

DRUGS (4)
  1. VINCRISTINE SULFATE [Suspect]
     Active Substance: VINCRISTINE SULFATE
     Indication: Targeted cancer therapy
     Dosage: 1 MG, MONTHLY
     Route: 042
     Dates: start: 20230826
  2. RITUXIMAB [Suspect]
     Active Substance: RITUXIMAB
     Indication: Targeted cancer therapy
     Dosage: 500 MG, MONTHLY
     Route: 042
     Dates: start: 20230826
  3. DOXORUBICIN HYDROCHLORIDE [Suspect]
     Active Substance: DOXORUBICIN HYDROCHLORIDE
     Indication: Targeted cancer therapy
     Dosage: 53.7 MG, MONTHLY
     Route: 042
     Dates: start: 20230826
  4. CYCLOPHOSPHAMIDE [Suspect]
     Active Substance: CYCLOPHOSPHAMIDE
     Indication: Targeted cancer therapy
     Dosage: 1074 MG, MONTHLY
     Route: 042
     Dates: start: 20230826

REACTIONS (1)
  - Skin necrosis [Recovering/Resolving]

NARRATIVE: CASE EVENT DATE: 20230928
